FAERS Safety Report 4353720-1 (Version None)
Quarter: 2004Q2

REPORT INFORMATION
  Report Type: 
  Country: None (occurrence: None)
  Receive Date: 20040430
  Receipt Date: 20040301
  Transmission Date: 20050107
  Serious: No
  Sender: FDA-Public Use
  Company Number: 203675

PATIENT
  Age: 57 Year
  Sex: Female
  Weight: 63.5 kg

DRUGS (3)
  1. XOLAIR [Suspect]
     Dosage: 225 MG, 2/MONTH, SUBCUTANEOUS
     Route: 058
     Dates: start: 20031203
  2. XOLAIR [Suspect]
     Dosage: 225 MG, 2/MONTH, SUBCUTANEOUS
     Route: 058
     Dates: start: 20031203
  3. IVIG (GLOBULIN, IMMUNE) [Concomitant]

REACTIONS (3)
  - ARTHRALGIA [None]
  - MALAISE [None]
  - TYPE III IMMUNE COMPLEX MEDIATED REACTION [None]
